FAERS Safety Report 7622682-3 (Version None)
Quarter: 2011Q3

REPORT INFORMATION
  Report Type: 
  Country: None (occurrence: None)
  Receive Date: 20110719
  Receipt Date: 20110719
  Transmission Date: 20111222
  Serious: Yes (Hospitalization)
  Sender: FDA-Public Use
  Company Number: None

PATIENT
  Age: 38 Year
  Sex: Male
  Weight: 100.5 kg

DRUGS (1)
  1. GEMCITABINE HYDROCHLORIDE [Suspect]
     Dosage: 780 MG

REACTIONS (16)
  - ANORECTAL DISCOMFORT [None]
  - HYPOGEUSIA [None]
  - DEVICE RELATED INFECTION [None]
  - GASTROENTERITIS RADIATION [None]
  - DIVERTICULUM [None]
  - PERFORMANCE STATUS DECREASED [None]
  - NAUSEA [None]
  - HYPOPHAGIA [None]
  - HAEMORRHOIDS [None]
  - HYPERHIDROSIS [None]
  - DYSURIA [None]
  - DIVERTICULITIS [None]
  - BACTERAEMIA [None]
  - INFECTION [None]
  - CHILLS [None]
  - DEHYDRATION [None]
